FAERS Safety Report 8152892-0 (Version None)
Quarter: 2012Q1

REPORT INFORMATION
  Report Type: 
  Country: None (occurrence: None)
  Receive Date: 20120221
  Receipt Date: 20120209
  Transmission Date: 20120608
  Serious: Yes (Other)
  Sender: FDA-Public Use
  Company Number: US-JNJFOC-20120105400

PATIENT
  Sex: Male
  Weight: 106.6 kg

DRUGS (4)
  1. REMICADE [Suspect]
     Indication: CROHN'S DISEASE
     Route: 042
     Dates: start: 20111220, end: 20111220
  2. CHLORTHALIDONE [Concomitant]
     Indication: BLOOD PRESSURE
     Dosage: DOSE: 25
     Route: 048
     Dates: start: 20110101
  3. ATENOLOL [Concomitant]
     Indication: BLOOD PRESSURE
     Dosage: 50
     Route: 048
     Dates: start: 20110101
  4. REMICADE [Suspect]
     Route: 042
     Dates: start: 20111101

REACTIONS (4)
  - INFUSION RELATED REACTION [None]
  - BLOOD CHOLESTEROL INCREASED [None]
  - HERPES ZOSTER [None]
  - HYPERSENSITIVITY [None]
